FAERS Safety Report 5946924-5 (Version None)
Quarter: 2008Q4

REPORT INFORMATION
  Report Type: 
  Country: None (occurrence: None)
  Receive Date: 20081110
  Receipt Date: 20081106
  Transmission Date: 20090506
  Serious: Yes (Other)
  Sender: FDA-Public Use
  Company Number: US-ASTRAZENECA-2008UW24858

PATIENT
  Age: 85 Year
  Sex: Female

DRUGS (11)
  1. LISINOPRIL [Suspect]
     Route: 048
  2. NORVASC [Concomitant]
  3. METOPROLOL TARTRATE [Concomitant]
  4. ALLOPURINOL [Concomitant]
  5. POTASSIUM CHLORIDE [Concomitant]
  6. SYNTHROID [Concomitant]
  7. ASPIRIN [Concomitant]
  8. ULTRAN TAB [Concomitant]
  9. HYDROCODONE [Concomitant]
  10. FISH OIL [Concomitant]
  11. COD LIVER OIL [Concomitant]

REACTIONS (1)
  - ENDOTRACHEAL INTUBATION [None]
